FAERS Safety Report 17374162 (Version 2)
Quarter: 2020Q1

REPORT INFORMATION
  Report Type: Spontaneous
  Country: US (occurrence: US)
  Receive Date: 20200205
  Receipt Date: 20200323
  Transmission Date: 20200409
  Serious: Yes (Other)
  Sender: FDA-Public Use
  Company Number: US-VANDA PHARMACEUTICALS, INC-2020ILOUS001788

PATIENT
  Age: 23 Year
  Sex: Female

DRUGS (9)
  1. ADDERALL [Concomitant]
     Active Substance: AMPHETAMINE ASPARTATE\AMPHETAMINE SULFATE\DEXTROAMPHETAMINE SACCHARATE\DEXTROAMPHETAMINE SULFATE
     Indication: PRODUCT USED FOR UNKNOWN INDICATION
     Dosage: 30 UNK, UNK
  2. OXCARBAZEPINE. [Concomitant]
     Active Substance: OXCARBAZEPINE
     Indication: PRODUCT USED FOR UNKNOWN INDICATION
     Dosage: 150 MG, UNK
  3. FLUVOXAMINE                        /00615202/ [Concomitant]
     Active Substance: FLUVOXAMINE MALEATE
     Indication: PRODUCT USED FOR UNKNOWN INDICATION
     Dosage: 25 MG, UNK
  4. FANAPT [Suspect]
     Active Substance: ILOPERIDONE
     Indication: DEPRESSION
     Dosage: 8 MG, QD
     Route: 048
     Dates: start: 2019
  5. QUETIAPINE. [Concomitant]
     Active Substance: QUETIAPINE
     Indication: PRODUCT USED FOR UNKNOWN INDICATION
     Dosage: 50 MG, UNK
  6. FANAPT [Suspect]
     Active Substance: ILOPERIDONE
     Indication: ANXIETY
     Dosage: 10 MG, QD
     Dates: start: 20200212
  7. FANAPT [Suspect]
     Active Substance: ILOPERIDONE
     Indication: ATTENTION DEFICIT/HYPERACTIVITY DISORDER
  8. FANAPT [Suspect]
     Active Substance: ILOPERIDONE
     Indication: SUICIDAL IDEATION
  9. KLONOPIN [Concomitant]
     Active Substance: CLONAZEPAM
     Indication: PRODUCT USED FOR UNKNOWN INDICATION
     Dosage: 1.00 UNK, UNK

REACTIONS (2)
  - Product use in unapproved indication [Unknown]
  - Suicidal ideation [Recovering/Resolving]

NARRATIVE: CASE EVENT DATE: 20010112
